FAERS Safety Report 11650687 (Version 1)
Quarter: 2015Q4

REPORT INFORMATION
  Report Type: Spontaneous
  Country: US (occurrence: US)
  Receive Date: 20151021
  Receipt Date: 20151021
  Transmission Date: 20160304
  Serious: No
  Sender: FDA-Public Use
  Company Number: US-009507513-1509USA015360

PATIENT
  Sex: Female

DRUGS (1)
  1. NEXPLANON [Suspect]
     Active Substance: ETONOGESTREL
     Dosage: UNK
     Route: 059
     Dates: start: 201401

REACTIONS (4)
  - Acne [Unknown]
  - Device breakage [Unknown]
  - Mood swings [Unknown]
  - Device deployment issue [Unknown]

NARRATIVE: CASE EVENT DATE: 201401
